FAERS Safety Report 4957785-5 (Version None)
Quarter: 2006Q1

REPORT INFORMATION
  Report Type: 
  Country: None (occurrence: None)
  Receive Date: 20060324
  Receipt Date: 20060306
  Transmission Date: 20060701
  Serious: Yes (Hospitalization, Other)
  Sender: FDA-Public Use
  Company Number: 2006036652

PATIENT
  Age: 49 Year
  Sex: Male

DRUGS (1)
  1. BEXTRA [Suspect]
     Indication: BACK PAIN
     Dosage: 10 MG (10 MG, 1 IN 1 D)
     Dates: start: 20040101

REACTIONS (4)
  - MENTAL STATUS CHANGES [None]
  - PYREXIA [None]
  - RASH [None]
  - VASCULITIS [None]
